FAERS Safety Report 8462449-X (Version None)
Quarter: 2012Q2

REPORT INFORMATION
  Report Type: 
  Country: None (occurrence: None)
  Receive Date: 20120625
  Receipt Date: 20120615
  Transmission Date: 20120825
  Serious: Yes (Death)
  Sender: FDA-Public Use
  Company Number: US-JNJFOC-20101103944

PATIENT
  Age: 62 Year
  Sex: Male

DRUGS (3)
  1. PREDNISONE [Concomitant]
  2. REMICADE [Suspect]
     Indication: INFLAMMATORY BOWEL DISEASE
     Dosage: 3 YEARS DURATION; LAST DOSE 40 DAYS PRIOR TO PML DIAGNOSIS
     Route: 042
  3. PROTON PUMP INHIBITOR [Concomitant]

REACTIONS (1)
  - PROGRESSIVE MULTIFOCAL LEUKOENCEPHALOPATHY [None]
